FAERS Safety Report 12737447 (Version 1)
Quarter: 2016Q3

REPORT INFORMATION
  Report Type: Spontaneous
  Country: US (occurrence: US)
  Receive Date: 20160912
  Receipt Date: 20160912
  Transmission Date: 20161109
  Serious: No
  Sender: FDA-Public Use
  Company Number: US-TEVA-691924USA

PATIENT
  Sex: Female

DRUGS (2)
  1. MODAFINIL. [Suspect]
     Active Substance: MODAFINIL
     Indication: DISTURBANCE IN ATTENTION
  2. MODAFINIL. [Suspect]
     Active Substance: MODAFINIL
     Indication: AFFECTIVE DISORDER

REACTIONS (1)
  - Off label use [Unknown]
